FAERS Safety Report 6822289-1 (Version None)
Quarter: 2010Q3

REPORT INFORMATION
  Report Type: 
  Country: None (occurrence: None)
  Receive Date: 20100707
  Receipt Date: 20100707
  Transmission Date: 20110219
  Serious: No
  Sender: FDA-Public Use
  Company Number: None

PATIENT
  Age: 58 Year
  Sex: Female
  Weight: 72.5755 kg

DRUGS (1)
  1. VIVELLE [Suspect]
     Indication: MENOPAUSE
     Dosage: 0.025 2 TWICE WEEKLY
     Dates: start: 20100629, end: 20100702

REACTIONS (11)
  - BLOOD GLUCOSE INCREASED [None]
  - DEHYDRATION [None]
  - DIZZINESS [None]
  - FLUID RETENTION [None]
  - FUNGAL INFECTION [None]
  - HEADACHE [None]
  - MUSCLE SPASMS [None]
  - OVERDOSE [None]
  - PAIN [None]
  - POLYURIA [None]
  - PRODUCT QUALITY ISSUE [None]
